FAERS Safety Report 4542475-3 (Version None)
Quarter: 2004Q4

REPORT INFORMATION
  Report Type: 
  Country: None (occurrence: None)
  Receive Date: 20041227
  Receipt Date: 20041214
  Transmission Date: 20050328
  Serious: Yes (Hospitalization)
  Sender: FDA-Public Use
  Company Number: 2004114350

PATIENT
  Age: 66 Year
  Sex: Male
  Weight: 99.7913 kg

DRUGS (6)
  1. CELEBREX [Suspect]
     Indication: OSTEOARTHRITIS
     Dosage: 200 GM (200 MG 1 IN 1 D ORAL)
     Route: 048
     Dates: start: 20040101, end: 20040101
  2. ROFECOXIB [Suspect]
     Indication: OSTEOARTHRITIS
     Dosage: 25 MG (25 MG 1 IN 1 D) ORAL
     Route: 048
     Dates: start: 20040101, end: 20040101
  3. LISINOPRIL [Concomitant]
  4. METORPOLOL (METOPROLOL) [Concomitant]
  5. LOVASTATIN [Concomitant]
  6. LANSOPRAZOLE [Concomitant]

REACTIONS (7)
  - ANGINA PECTORIS [None]
  - CORONARY ARTERY OCCLUSION [None]
  - DIZZINESS [None]
  - DRUG INEFFECTIVE [None]
  - HYPERHIDROSIS [None]
  - NAUSEA [None]
  - PAIN [None]
